FAERS Safety Report 4407334-5 (Version None)
Quarter: 2004Q3

REPORT INFORMATION
  Report Type: 
  Country: None (occurrence: None)
  Receive Date: 20040721
  Receipt Date: 20040705
  Transmission Date: 20050211
  Serious: Yes (Hospitalization)
  Sender: FDA-Public Use
  Company Number: JP_040503226

PATIENT
  Age: 56 Year
  Sex: Female
  Weight: 55 kg

DRUGS (11)
  1. GEMZAR [Suspect]
     Indication: PANCREATIC CARCINOMA
     Dosage: 380 MG, OTHER
     Route: 050
     Dates: start: 20040407, end: 20040518
  2. RADIATION THERAPY [Concomitant]
  3. NIZATIDINE [Concomitant]
  4. LOXONIN (LOXOPROFEN SODIUM) [Concomitant]
  5. ANPEC (MORPHINE HYDROCHLORIDE) [Concomitant]
  6. MAGNESIUM OXIDE [Concomitant]
  7. BETAMETHASONE [Concomitant]
  8. POSTERISAN FORTE [Concomitant]
  9. MONILAC (LACTULOSE) [Concomitant]
  10. NAUZELIN (DOMPERIDONE) [Concomitant]
  11. KENALOG [Concomitant]

REACTIONS (2)
  - INTERSTITIAL LUNG DISEASE [None]
  - NAUSEA [None]
